FAERS Safety Report 11501689 (Version 3)
Quarter: 2015Q4

REPORT INFORMATION
  Report Type: Spontaneous
  Country: NZ (occurrence: NZ)
  Receive Date: 20150914
  Receipt Date: 20151125
  Transmission Date: 20160304
  Serious: Yes (Hospitalization, Other)
  Sender: FDA-Public Use
  Company Number: NZ-PFIZER INC-2015305305

PATIENT
  Age: 29 Year
  Sex: Female

DRUGS (10)
  1. LORATADINE. [Concomitant]
     Active Substance: LORATADINE
  2. LOSEC [Concomitant]
     Active Substance: OMEPRAZOLE
     Dosage: UNK
  3. DEPO-PROVERA [Suspect]
     Active Substance: MEDROXYPROGESTERONE ACETATE
     Indication: MENSTRUAL CYCLE MANAGEMENT
     Dosage: UNK
     Dates: start: 20150521, end: 20150521
  4. LANTUS [Concomitant]
     Active Substance: INSULIN GLARGINE
     Indication: TYPE 1 DIABETES MELLITUS
     Dosage: UNK
  5. LEVOTHYROXINE. [Concomitant]
     Active Substance: LEVOTHYROXINE
     Dosage: UNK
  6. QUETAPEL [Concomitant]
     Dosage: 25 MG, UNK
     Dates: start: 20150526
  7. TRISUL [Concomitant]
     Dosage: 2 COURSE DOSE
     Dates: start: 20150527
  8. EPILIM [Concomitant]
     Active Substance: VALPROATE SODIUM
     Dosage: UNK
  9. NOVORAPID [Concomitant]
     Active Substance: INSULIN ASPART
     Indication: TYPE 1 DIABETES MELLITUS
     Dosage: UNK
  10. CIPROXIN /00697201/ [Concomitant]
     Active Substance: CIPROFLOXACIN
     Dosage: 2 DOSE COURSE
     Dates: start: 20150917

REACTIONS (22)
  - Affect lability [Unknown]
  - Heart rate increased [Unknown]
  - Paranoia [Unknown]
  - Hallucination [Not Recovered/Not Resolved]
  - Illusion [Unknown]
  - Delirium [Not Recovered/Not Resolved]
  - Abnormal behaviour [Not Recovered/Not Resolved]
  - Anxiety [Unknown]
  - Hyperacusis [Unknown]
  - Poor quality sleep [Unknown]
  - Logorrhoea [Not Recovered/Not Resolved]
  - Pyrexia [Unknown]
  - Blood glucose abnormal [Unknown]
  - Emotional disorder [Unknown]
  - Constipation [Unknown]
  - Confusional state [Unknown]
  - C-reactive protein increased [Unknown]
  - Tearfulness [Unknown]
  - Hypervigilance [Unknown]
  - Fear [Not Recovered/Not Resolved]
  - Infection [Unknown]
  - Product use issue [Unknown]

NARRATIVE: CASE EVENT DATE: 20150522
